FAERS Safety Report 8768098 (Version 1)
Quarter: 2012Q4

REPORT INFORMATION
  Report Type: 
  Country: US (occurrence: US)
  Receive Date: 20120904
  Receipt Date: 20120904
  Transmission Date: 20130627
  Serious: No
  Sender: FDA-Public Use
  Company Number: US-AMGEN-USASP2012054164

PATIENT
  Age: 55 Year
  Sex: Female

DRUGS (1)
  1. ENBREL [Suspect]
     Indication: PSORIATIC ARTHROPATHY
     Dosage: UNK UNK, qwk
     Route: 058
     Dates: start: 20100810

REACTIONS (5)
  - Chest discomfort [Not Recovered/Not Resolved]
  - Blister [Not Recovered/Not Resolved]
  - Rash erythematous [Recovered/Resolved]
  - Rash [Recovered/Resolved]
  - Chest pain [Recovered/Resolved]
